FAERS Safety Report 4557719-1 (Version None)
Quarter: 2005Q1

REPORT INFORMATION
  Report Type: 
  Country: None (occurrence: None)
  Receive Date: 20050118
  Receipt Date: 20050104
  Transmission Date: 20050727
  Serious: Yes (Hospitalization)
  Sender: FDA-Public Use
  Company Number: 2005-BP-00216YA

PATIENT
  Age: 87 Year
  Sex: Male

DRUGS (6)
  1. OMIX (TAMSULOSIN HYDROCHLORIDE) (TAMSULOSIN) [Suspect]
     Dosage: 0.4 MG, PO
     Route: 048
     Dates: start: 19990101
  2. ACETAMINOPHEN [Suspect]
     Dosage: 3 G, PO
     Route: 048
     Dates: start: 20030110
  3. HEMIDAONIL [Suspect]
     Dosage: 2.5 MG, PO
     Route: 048
     Dates: start: 20000101
  4. RAMACTAN [Suspect]
     Dosage: 1800 MG, PO
     Route: 048
     Dates: start: 20041030
  5. CLAMOXYL [Suspect]
     Dosage: 8 G, PO
     Route: 048
     Dates: start: 20041030
  6. OMEPRAZOLE [Suspect]
     Dosage: 40 MG, PO
     Route: 048
     Dates: start: 20030101

REACTIONS (3)
  - HEPATITIS [None]
  - HEPATITIS CHOLESTATIC [None]
  - LYMPHOPENIA [None]
